FAERS Safety Report 15950045 (Version 2)
Quarter: 2019Q1

REPORT INFORMATION
  Report Type: Other
  Country: IT (occurrence: IT)
  Receive Date: 20190211
  Receipt Date: 20190321
  Transmission Date: 20190417
  Serious: Yes (Other)
  Sender: FDA-Public Use
  Company Number: IT-ACCORD-106482

PATIENT
  Age: 18 Year
  Sex: Female

DRUGS (2)
  1. RISPERIDONE. [Suspect]
     Active Substance: RISPERIDONE
     Indication: ACUTE PSYCHOSIS
     Route: 048
     Dates: start: 20170101, end: 20171117
  2. QUETIAPINE. [Suspect]
     Active Substance: QUETIAPINE
     Indication: ACUTE PSYCHOSIS
     Route: 048
     Dates: start: 20170101, end: 20171117

REACTIONS (2)
  - Dyskinesia [Unknown]
  - Nystagmus [Unknown]

NARRATIVE: CASE EVENT DATE: 20171117
